FAERS Safety Report 5608421-6 (Version None)
Quarter: 2008Q1

REPORT INFORMATION
  Report Type: 
  Country: None (occurrence: None)
  Receive Date: 20080130
  Receipt Date: 20080122
  Transmission Date: 20080703
  Serious: Yes (Hospitalization)
  Sender: FDA-Public Use
  Company Number: AU-GENENTECH-254648

PATIENT
  Sex: Male
  Weight: 90.9 kg

DRUGS (4)
  1. PLACEBO [Suspect]
     Indication: NON-SMALL CELL LUNG CANCER
     Dosage: 1335 UNK, UNK
     Route: 042
     Dates: start: 20080115
  2. BEVACIZUMAB [Suspect]
     Indication: NON-SMALL CELL LUNG CANCER
     Dosage: 1335 MG, UNK
     Route: 042
     Dates: start: 20080115
  3. PACLITAXEL [Suspect]
     Indication: NON-SMALL CELL LUNG CANCER
     Dosage: 428 UNK, UNK
     Route: 042
     Dates: start: 20080115
  4. CARBOPLATIN [Suspect]
     Indication: NON-SMALL CELL LUNG CANCER
     Dosage: 675 MG, UNK
     Route: 042
     Dates: start: 20080115

REACTIONS (1)
  - PYREXIA [None]
